FAERS Safety Report 8776463 (Version 10)
Quarter: 2015Q2

REPORT INFORMATION
  Report Type: Report from Study
  Country: US (occurrence: US)
  Receive Date: 20120910
  Receipt Date: 20150514
  Transmission Date: 20150821
  Serious: Yes (Hospitalization, Other)
  Sender: FDA-Public Use
  Company Number: US-JNJFOC-20120901706

PATIENT
  Age: 14 Year
  Sex: Female
  Weight: 27.6 kg

DRUGS (8)
  1. HUMIRA [Concomitant]
     Active Substance: ADALIMUMAB
  2. REMICADE [Suspect]
     Active Substance: INFLIXIMAB
     Indication: CROHN^S DISEASE
     Dosage: NOTED AS ADMINISTERED TO APR-2012, AND ^DISCONTINUED^ ON 17-MAY-2012.
     Route: 042
     Dates: start: 20111111, end: 20120517
  3. PROBIOTICS [Concomitant]
     Active Substance: PROBIOTICS NOS
  4. PREDNISONE. [Concomitant]
     Active Substance: PREDNISONE
  5. BENADRYL [Concomitant]
     Active Substance: DIPHENHYDRAMINE HYDROCHLORIDE
     Route: 065
  6. TYLENOL [Concomitant]
     Active Substance: ACETAMINOPHEN
     Route: 065
  7. FISH OIL [Concomitant]
     Active Substance: FISH OIL
     Route: 065
  8. VITAMIN D3 [Concomitant]
     Active Substance: CHOLECALCIFEROL
     Route: 065

REACTIONS (4)
  - Gastrointestinal haemorrhage [Recovered/Resolved]
  - Crohn^s disease [Recovered/Resolved]
  - Abdominal abscess [Recovered/Resolved]
  - Malnutrition [Recovered/Resolved with Sequelae]

NARRATIVE: CASE EVENT DATE: 201208
